FAERS Safety Report 25244162 (Version 2)
Quarter: 2025Q2

REPORT INFORMATION
  Report Type: Spontaneous
  Country: IT (occurrence: IT)
  Receive Date: 20250428
  Receipt Date: 20250509
  Transmission Date: 20250717
  Serious: Yes (Death)
  Sender: TEVA
  Company Number: IT-TEVA-VS-3324951

PATIENT
  Age: 68 Year
  Sex: Male

DRUGS (5)
  1. GEMCITABINE [Suspect]
     Active Substance: GEMCITABINE
     Indication: Mixed hepatocellular cholangiocarcinoma
     Route: 065
  2. CAPECITABINE [Suspect]
     Active Substance: CAPECITABINE
     Indication: Mixed hepatocellular cholangiocarcinoma
     Dosage: FIRST LINE
     Route: 065
  3. CAPECITABINE [Suspect]
     Active Substance: CAPECITABINE
     Indication: Mixed hepatocellular cholangiocarcinoma
     Route: 065
  4. SORAFENIB [Suspect]
     Active Substance: SORAFENIB
     Indication: Mixed hepatocellular cholangiocarcinoma
     Dosage: DOSE DECREASED
     Route: 065
  5. SORAFENIB [Suspect]
     Active Substance: SORAFENIB
     Indication: Mixed hepatocellular cholangiocarcinoma
     Dosage: SECOND LINE
     Route: 065

REACTIONS (3)
  - Drug ineffective [Fatal]
  - Haematotoxicity [Unknown]
  - Platelet count decreased [Unknown]
